FAERS Safety Report 12762104 (Version 1)
Quarter: 2016Q3

REPORT INFORMATION
  Report Type: Spontaneous
  Country: US (occurrence: US)
  Receive Date: 20160915
  Receipt Date: 20160915
  Transmission Date: 20161109
  Serious: No
  Sender: FDA-Public Use
  Company Number: None

PATIENT
  Sex: Female

DRUGS (1)
  1. IBRANCE [Suspect]
     Active Substance: PALBOCICLIB
     Indication: BREAST CANCER
     Dosage: 125MG DAILY (21 OF 28 DAYS) BY MOUTH
     Route: 048
     Dates: start: 20160407

REACTIONS (3)
  - Weight increased [None]
  - Procedural site reaction [None]
  - Swelling [None]
